FAERS Safety Report 4528657-5 (Version None)
Quarter: 2004Q4

REPORT INFORMATION
  Report Type: 
  Country: None (occurrence: None)
  Receive Date: 20041216
  Receipt Date: 20040115
  Transmission Date: 20050328
  Serious: Yes (Life-Threatening, Disabling)
  Sender: FDA-Public Use
  Company Number: US-MERCK-0401USA01205

PATIENT
  Sex: Female
  Weight: 58 kg

DRUGS (18)
  1. ZOCOR [Suspect]
     Indication: HYPERLIPIDAEMIA
     Route: 048
     Dates: start: 19980101, end: 20031114
  2. ZOCOR [Suspect]
     Indication: BLOOD CHOLESTEROL INCREASED
     Route: 048
     Dates: start: 19980101, end: 20031114
  3. ATENOLOL [Concomitant]
     Indication: HYPERTENSION
     Route: 048
  4. ATENOLOL [Concomitant]
     Indication: CORONARY ARTERY DISEASE
     Route: 048
  5. LEVOTHROID [Concomitant]
     Route: 065
  6. HYDRODIURIL [Concomitant]
     Indication: HYPERTENSION
     Route: 048
  7. HYDRODIURIL [Concomitant]
     Indication: CORONARY ARTERY DISEASE
     Route: 048
  8. FOLIC ACID [Concomitant]
     Route: 065
  9. LEXAPRO [Concomitant]
     Route: 065
  10. NIFEDIPINE [Concomitant]
     Indication: HYPERTENSION
     Route: 048
  11. FOSAMAX [Concomitant]
     Indication: OSTEOPOROSIS
     Route: 048
  12. ZETIA [Concomitant]
     Route: 065
  13. ASACOL [Concomitant]
     Indication: COLITIS ULCERATIVE
     Route: 048
  14. NITROGLYCERIN [Concomitant]
     Route: 065
  15. VITAMIN E [Concomitant]
     Route: 065
  16. VITAMIN D (UNSPECIFIED) [Concomitant]
     Route: 065
  17. ASPIRIN [Concomitant]
     Route: 065
  18. HYDROCHLOROTHIAZIDE [Concomitant]
     Route: 065

REACTIONS (4)
  - DEATH OF SPOUSE [None]
  - HYPERKERATOSIS [None]
  - NEUROPATHY [None]
  - PERIPHERAL SENSORY NEUROPATHY [None]
